FAERS Safety Report 9723389 (Version 7)
Quarter: 2014Q2

REPORT INFORMATION
  Report Type: Spontaneous
  Country: JP (occurrence: JP)
  Receive Date: 20131202
  Receipt Date: 20140403
  Transmission Date: 20141212
  Serious: Yes (Other)
  Sender: FDA-Public Use
  Company Number: JP-BRISTOL-MYERS SQUIBB COMPANY-17452525

PATIENT
  Age: 68 Year
  Sex: Male
  Weight: 63 kg

DRUGS (9)
  1. ERBITUX SOLN FOR INF 5MG/ML [Suspect]
     Indication: COLON CANCER
     Dosage: 250MG/M2 WAS ALSO RECEIVED WKLY.24AP12,AP12-MY12 AND 27NV12-18NV13
     Route: 041
     Dates: start: 20120424
  2. IRINOTECAN [Concomitant]
     Indication: COLON CANCER
     Route: 041
     Dates: start: 20120731, end: 201302
  3. OXALIPLATIN [Concomitant]
     Indication: COLON CANCER
     Route: 041
     Dates: start: 20120424, end: 201302
  4. 5-FLUOROURACIL [Concomitant]
     Indication: COLON CANCER
     Dosage: 24AP12-FE13:400MG/M2.31JL12-FEB13:400MG/M2.31JL12-FEB13:2400MG/M2
     Route: 040
     Dates: start: 20120424, end: 201302
  5. LEUCOVORIN [Concomitant]
     Indication: COLON CANCER
     Dosage: 31JL12-FE13:200MG/M2
     Route: 041
     Dates: start: 20120424, end: 201302
  6. CALCIUM FOLINATE [Concomitant]
     Indication: COLON CANCER
     Route: 048
     Dates: start: 20130219, end: 20131118
  7. UFT CAPS [Concomitant]
     Indication: COLORECTAL CANCER
     Route: 048
  8. UZEL [Concomitant]
     Indication: COLORECTAL CANCER
     Route: 048
  9. CALCIUM CHLORIDE [Concomitant]
     Route: 041
     Dates: start: 20130304, end: 20131105

REACTIONS (3)
  - Electrocardiogram QT prolonged [Recovered/Resolved]
  - Hypomagnesaemia [Not Recovered/Not Resolved]
  - Hypocalcaemia [Not Recovered/Not Resolved]
